FAERS Safety Report 17792352 (Version 2)
Quarter: 2020Q2

REPORT INFORMATION
  Report Type: Spontaneous
  Country: BE (occurrence: BE)
  Receive Date: 20200515
  Receipt Date: 20200528
  Transmission Date: 20200714
  Serious: Yes (Other)
  Sender: FDA-Public Use
  Company Number: BE-PFIZER INC-2020191750

PATIENT
  Age: 24 Year
  Sex: Male
  Weight: 96 kg

DRUGS (1)
  1. SERLAIN [Suspect]
     Active Substance: SERTRALINE HYDROCHLORIDE
     Dosage: 50 MG
     Route: 048

REACTIONS (7)
  - Drug dependence [Unknown]
  - Paranoia [Unknown]
  - Restlessness [Unknown]
  - Nervousness [Unknown]
  - Tic [Unknown]
  - Withdrawal syndrome [Unknown]
  - Memory impairment [Unknown]
